FAERS Safety Report 20663470 (Version 1)
Quarter: 2022Q2

REPORT INFORMATION
  Report Type: Spontaneous
  Country: US (occurrence: None)
  Receive Date: 20220401
  Receipt Date: 20220401
  Transmission Date: 20220721
  Serious: Yes (Hospitalization)
  Sender: FDA-Public Use
  Company Number: None

PATIENT
  Sex: Male

DRUGS (2)
  1. TAFINLAR [Suspect]
     Active Substance: DABRAFENIB MESYLATE
     Indication: Metastasis
     Dosage: FREQUENCY : TWICE A DAY;?
     Route: 048
     Dates: start: 20190727
  2. MEKINIST [Suspect]
     Active Substance: TRAMETINIB DIMETHYL SULFOXIDE
     Indication: Metastasis
     Dosage: FREQUENCY : TWICE A DAY;?
     Route: 048
     Dates: start: 20190727

REACTIONS (1)
  - Peripheral swelling [None]
